FAERS Safety Report 6200573-2 (Version None)
Quarter: 2009Q2

REPORT INFORMATION
  Report Type: 
  Country: None (occurrence: None)
  Receive Date: 20090522
  Receipt Date: 20080422
  Transmission Date: 20091009
  Serious: No
  Sender: FDA-Public Use
  Company Number: US-ALEXION-A200800021

PATIENT
  Sex: Female

DRUGS (13)
  1. SOLIRIS [Suspect]
     Indication: PAROXYSMAL NOCTURNAL HAEMOGLOBINURIA
     Dosage: 600 MG, SINGLE
     Route: 042
     Dates: start: 20080212, end: 20080212
  2. SOLIRIS [Suspect]
     Dosage: 600 MG, SINGLE
     Route: 042
     Dates: start: 20080219, end: 20080219
  3. SOLIRIS [Suspect]
     Dosage: 600 MG, SINGLE
     Route: 042
     Dates: start: 20080226, end: 20080226
  4. SOLIRIS [Suspect]
     Dosage: 600 MG, SINGLE
     Route: 042
     Dates: start: 20080304, end: 20080304
  5. SOLIRIS [Suspect]
     Dosage: 900 MG, SINGLE
     Route: 042
     Dates: start: 20080311, end: 20080311
  6. SOLIRIS [Suspect]
     Dosage: 900 MG, SINGLE
     Route: 042
     Dates: start: 20080325, end: 20080325
  7. SOLIRIS [Suspect]
     Dosage: 900 MG, SINGLE
     Route: 042
     Dates: start: 20080408, end: 20080408
  8. BENADRYL [Concomitant]
     Indication: PREMEDICATION
     Dosage: UNK, SINGLE
     Dates: start: 20080212, end: 20080212
  9. LOVENOX [Concomitant]
     Indication: PROPHYLAXIS
     Dosage: 60 MG, BID
  10. GLUCOPHAGE [Concomitant]
     Dosage: 500 MG, BID
  11. FOLIC ACID [Concomitant]
     Dosage: 4 MG, QD
  12. NADOLOL [Concomitant]
     Dosage: 80 MG, QD
  13. NEURONTIN [Concomitant]
     Dosage: 300 MG, BID

REACTIONS (3)
  - BACK PAIN [None]
  - HEADACHE [None]
  - RHINITIS [None]
